FAERS Safety Report 20447708 (Version 1)
Quarter: 2022Q1

REPORT INFORMATION
  Report Type: Spontaneous
  Country: RU (occurrence: RU)
  Receive Date: 20220209
  Receipt Date: 20220209
  Transmission Date: 20220423
  Serious: Yes (Hospitalization)
  Sender: FDA-Public Use
  Company Number: RU-SA-2022SA032263

PATIENT
  Age: 45 Year
  Sex: Male
  Weight: 64 kg

DRUGS (1)
  1. FABRAZYME [Suspect]
     Active Substance: AGALSIDASE BETA
     Indication: Fabry^s disease
     Dosage: 70 MG
     Route: 042
     Dates: start: 20200726

REACTIONS (4)
  - Allergic oedema [Unknown]
  - Swelling face [Unknown]
  - Peripheral swelling [Unknown]
  - Incorrect drug administration rate [Unknown]

NARRATIVE: CASE EVENT DATE: 20200904
